FAERS Safety Report 20833686 (Version 1)
Quarter: 2022Q2

REPORT INFORMATION
  Report Type: 
  Country: None (occurrence: None)
  Receive Date: 20220516
  Receipt Date: 20220516
  Transmission Date: 20220721
  Serious: No
  Sender: FDA-Public Use
  Company Number: CA-ROCHE-3093983

PATIENT

DRUGS (30)
  1. ENBREL [Suspect]
     Active Substance: ETANERCEPT
  2. DICLOFENAC [Suspect]
     Active Substance: DICLOFENAC
  3. DESOXIMETASONE [Suspect]
     Active Substance: DESOXIMETASONE
  4. DESOXIMETASONE [Suspect]
     Active Substance: DESOXIMETASONE
  5. ACTEMRA [Suspect]
     Active Substance: TOCILIZUMAB
  6. ARAVA [Suspect]
     Active Substance: LEFLUNOMIDE
  7. SULFASALAZINE [Suspect]
     Active Substance: SULFASALAZINE
  8. FOSAMAX [Suspect]
     Active Substance: ALENDRONATE SODIUM
  9. DICLOFENAC SODIUM [Suspect]
     Active Substance: DICLOFENAC SODIUM
  10. KEVZARA [Suspect]
     Active Substance: SARILUMAB
  11. REMICADE [Suspect]
     Active Substance: INFLIXIMAB
  12. CETIRIZINE HYDROCHLORIDE [Suspect]
     Active Substance: CETIRIZINE HYDROCHLORIDE
  13. HUMIRA [Suspect]
     Active Substance: ADALIMUMAB
  14. PSEUDOEPHEDRINE HYDROCHLORIDE [Suspect]
     Active Substance: PSEUDOEPHEDRINE HYDROCHLORIDE
  15. SIMPONI [Suspect]
     Active Substance: GOLIMUMAB
  16. FOLIC ACID [Suspect]
     Active Substance: FOLIC ACID
  17. XELJANZ [Suspect]
     Active Substance: TOFACITINIB CITRATE
  18. CORTISONE ACETATE [Suspect]
     Active Substance: CORTISONE ACETATE
  19. CIMZIA [Suspect]
     Active Substance: CERTOLIZUMAB PEGOL
  20. ORENCIA [Suspect]
     Active Substance: ABATACEPT
  21. PHTHALYLSULFATHIAZOLE [Suspect]
     Active Substance: PHTHALYLSULFATHIAZOLE
  22. LEFLUNOMIDE [Suspect]
     Active Substance: LEFLUNOMIDE
  23. PREDNISONE [Suspect]
     Active Substance: PREDNISONE
  24. RITUXIMAB [Suspect]
     Active Substance: RITUXIMAB
  25. METHOTREXATE [Suspect]
     Active Substance: METHOTREXATE
  26. METHOTREXATE [Suspect]
     Active Substance: METHOTREXATE
  27. METHOTREXATE [Suspect]
     Active Substance: METHOTREXATE
  28. HYDROXYCHLOROQUINE [Suspect]
     Active Substance: HYDROXYCHLOROQUINE
  29. HYDROXYCHLOROQUINE SULFATE [Suspect]
     Active Substance: HYDROXYCHLOROQUINE SULFATE
  30. STELARA [Suspect]
     Active Substance: USTEKINUMAB

REACTIONS (26)
  - Swelling [None]
  - Systemic lupus erythematosus [None]
  - Synovitis [None]
  - Hand deformity [None]
  - Drug intolerance [None]
  - Abdominal discomfort [None]
  - Wound [None]
  - Rash [None]
  - Anti-cyclic citrullinated peptide antibody positive [None]
  - Joint swelling [None]
  - Fatigue [None]
  - Maternal exposure during pregnancy [None]
  - Drug ineffective [None]
  - Contraindicated product administered [None]
  - Pain [None]
  - Pemphigus [None]
  - Off label use [None]
  - Rheumatoid factor positive [None]
  - Condition aggravated [None]
  - Product use issue [None]
  - Arthropathy [None]
  - Hepatic enzyme increased [None]
  - Alopecia [None]
  - Discomfort [None]
  - Infusion related reaction [None]
  - Glossodynia [None]
